FAERS Safety Report 22651646 (Version 1)
Quarter: 2023Q2

REPORT INFORMATION
  Report Type: Spontaneous
  Country: US (occurrence: US)
  Receive Date: 20230628
  Receipt Date: 20230628
  Transmission Date: 20230722
  Serious: No
  Sender: FDA-Public Use
  Company Number: US-CTI BIOPHARMA-2023US03473

PATIENT

DRUGS (9)
  1. VONJO [Suspect]
     Active Substance: PACRITINIB
     Indication: Myelofibrosis
     Dosage: 100 MG, BID
     Route: 048
     Dates: start: 20230302
  2. VONJO [Suspect]
     Active Substance: PACRITINIB
     Dosage: 100 MG, BID
     Route: 048
     Dates: start: 20230302
  3. DYAZIDE [Concomitant]
     Active Substance: HYDROCHLOROTHIAZIDE\TRIAMTERENE
  4. FIORICET WITH CODEINE [Concomitant]
     Active Substance: ACETAMINOPHEN\BUTALBITAL\CAFFEINE\CODEINE PHOSPHATE
  5. UROCIT-K [Concomitant]
     Active Substance: POTASSIUM CITRATE
  6. RAPAFLO [Concomitant]
     Active Substance: SILODOSIN
  7. GEMTESA [Concomitant]
     Active Substance: VIBEGRON
  8. ALLOPURINOL [Concomitant]
     Active Substance: ALLOPURINOL
  9. TRIAMTERENE [Concomitant]
     Active Substance: TRIAMTERENE

REACTIONS (4)
  - Product administration error [Unknown]
  - Feeling abnormal [Unknown]
  - Oedema [Unknown]
  - Haemoglobin abnormal [Unknown]
